FAERS Safety Report 12595449 (Version 1)
Quarter: 2016Q3

REPORT INFORMATION
  Report Type: Report from Study
  Country: IN (occurrence: IN)
  Receive Date: 20160726
  Receipt Date: 20160726
  Transmission Date: 20161109
  Serious: Yes (Other)
  Sender: FDA-Public Use
  Company Number: IN-ASTELLAS-2016US028053

PATIENT

DRUGS (3)
  1. ERLOTINIB [Suspect]
     Active Substance: ERLOTINIB
     Indication: HEAD AND NECK CANCER
     Route: 048
  2. METHOTREXATE. [Suspect]
     Active Substance: METHOTREXATE
     Indication: HEAD AND NECK CANCER
     Route: 048
  3. CELECOXIB. [Suspect]
     Active Substance: CELECOXIB
     Indication: HEAD AND NECK CANCER
     Route: 048

REACTIONS (3)
  - Neutropenia [Unknown]
  - Dysphagia [Unknown]
  - Thrombocytopenia [Unknown]
